FAERS Safety Report 7396338-9 (Version None)
Quarter: 2011Q2

REPORT INFORMATION
  Report Type: 
  Country: None (occurrence: None)
  Receive Date: 20110406
  Receipt Date: 20110329
  Transmission Date: 20111010
  Serious: Yes (Hospitalization, Other)
  Sender: FDA-Public Use
  Company Number: US-US-EMD SERONO, INC.-7050857

PATIENT
  Sex: Female

DRUGS (2)
  1. REBIF [Suspect]
     Indication: MULTIPLE SCLEROSIS
     Route: 058
     Dates: start: 20070430
  2. CHOLESTEROL MEDICATION [Concomitant]

REACTIONS (5)
  - THYROID NEOPLASM [None]
  - LUNG NEOPLASM [None]
  - DYSPNOEA [None]
  - INJECTION SITE SCAR [None]
  - FATIGUE [None]
